FAERS Safety Report 4806212-7 (Version None)
Quarter: 2005Q4

REPORT INFORMATION
  Report Type: 
  Country: None (occurrence: None)
  Receive Date: 20051021
  Receipt Date: 20051019
  Transmission Date: 20060501
  Serious: Yes (Life-Threatening, Hospitalization, Other)
  Sender: FDA-Public Use
  Company Number: US-BRISTOL-MYERS SQUIBB COMPANY-13150503

PATIENT
  Age: 58 Year
  Sex: Female
  Weight: 124 kg

DRUGS (12)
  1. CARBOPLATIN [Suspect]
     Indication: PERITONEAL CARCINOMA
     Dates: start: 20040601, end: 20050506
  2. TAXOL [Suspect]
     Indication: PERITONEAL CARCINOMA
     Dates: start: 20040601
  3. PROCRIT [Suspect]
     Indication: ANAEMIA OF MALIGNANT DISEASE
     Route: 058
     Dates: start: 20050422
  4. GEMZAR [Concomitant]
     Dates: start: 20050407
  5. LOVENOX [Concomitant]
     Indication: DEEP VEIN THROMBOSIS
     Route: 058
     Dates: start: 20050502, end: 20050504
  6. COUMADIN [Concomitant]
     Indication: DEEP VEIN THROMBOSIS
     Dates: start: 20050506
  7. OMEPRAZOLE [Concomitant]
     Indication: HYPERCHLORHYDRIA
     Route: 048
     Dates: start: 20050502
  8. WARFARIN [Concomitant]
     Indication: ANTICOAGULANT THERAPY
     Route: 048
     Dates: start: 20050502
  9. LISINOPRIL [Concomitant]
     Indication: HYPERTENSION
     Route: 048
  10. COMPAZINE [Concomitant]
     Indication: NAUSEA
     Route: 048
     Dates: start: 20050502
  11. TOPOTECAN [Concomitant]
  12. SPIRONOLACTONE [Concomitant]
     Indication: OEDEMA PERIPHERAL
     Route: 048
     Dates: start: 20050526

REACTIONS (9)
  - ANAPHYLACTIC REACTION [None]
  - DEEP VEIN THROMBOSIS [None]
  - DEHYDRATION [None]
  - DRUG HYPERSENSITIVITY [None]
  - FEBRILE NEUTROPENIA [None]
  - HYPOTENSION [None]
  - HYPOXIA [None]
  - PANCYTOPENIA [None]
  - URTICARIA [None]
